FAERS Safety Report 10870843 (Version 1)
Quarter: 2015Q1

REPORT INFORMATION
  Report Type: Spontaneous
  Country: FR (occurrence: FR)
  Receive Date: 20150226
  Receipt Date: 20150226
  Transmission Date: 20150721
  Serious: Yes (Hospitalization)
  Sender: FDA-Public Use
  Company Number: FR-JNJFOC-20150215953

PATIENT
  Age: 71 Year
  Sex: Male

DRUGS (10)
  1. LAMALINE [Suspect]
     Active Substance: ACETAMINOPHEN\CAFFEINE\OPIUM
     Indication: HERPES ZOSTER
     Route: 048
     Dates: start: 201404, end: 20140514
  2. LIPANTHYL [Suspect]
     Active Substance: FENOFIBRATE
     Indication: HYPERTRIGLYCERIDAEMIA
     Route: 048
     Dates: start: 20140220, end: 20140515
  3. PIROXICAM. [Suspect]
     Active Substance: PIROXICAM
     Indication: BACK PAIN
     Route: 030
     Dates: start: 201404, end: 20140424
  4. PYOSTACINE [Suspect]
     Active Substance: PRISTINAMYCIN
     Indication: PYREXIA
     Route: 048
     Dates: start: 201404, end: 20140505
  5. DAFALGAN [Suspect]
     Active Substance: ACETAMINOPHEN
     Indication: HERPES ZOSTER
     Route: 048
     Dates: start: 201404, end: 20140514
  6. IXPRIM [Suspect]
     Active Substance: ACETAMINOPHEN\TRAMADOL HYDROCHLORIDE
     Indication: HERPES ZOSTER
     Route: 048
     Dates: start: 201404, end: 20140514
  7. TRAMADOL HYDROCHLORIDE. [Suspect]
     Active Substance: TRAMADOL HYDROCHLORIDE
     Indication: HERPES ZOSTER
     Route: 048
     Dates: end: 20140514
  8. AUGMENTIN [Suspect]
     Active Substance: AMOXICILLIN\CLAVULANATE POTASSIUM
     Indication: PRODUCTIVE COUGH
     Route: 048
     Dates: start: 2014, end: 20140514
  9. JANUVIA [Suspect]
     Active Substance: SITAGLIPTIN PHOSPHATE
     Indication: TYPE 2 DIABETES MELLITUS
     Route: 048
     Dates: start: 20140220, end: 20140515
  10. ZELITREX [Suspect]
     Active Substance: VALACYCLOVIR HYDROCHLORIDE
     Indication: HERPES ZOSTER
     Route: 048
     Dates: start: 201404, end: 20140501

REACTIONS (2)
  - Neutropenia [Recovering/Resolving]
  - Condition aggravated [Recovering/Resolving]

NARRATIVE: CASE EVENT DATE: 20140415
